FAERS Safety Report 10493892 (Version 2)
Quarter: 2014Q4

REPORT INFORMATION
  Report Type: Report from Study
  Country: AU (occurrence: AU)
  Receive Date: 20141003
  Receipt Date: 20141003
  Transmission Date: 20150528
  Serious: Yes (Disabling, Other)
  Sender: FDA-Public Use
  Company Number: AU-AMGEN-AUSSP2014028041

PATIENT
  Age: 72 Year
  Sex: Female

DRUGS (2)
  1. CALTRATE PLUS-D [Concomitant]
     Dosage: UNK
  2. XGEVA [Suspect]
     Active Substance: DENOSUMAB
     Indication: METASTASES TO BONE
     Dosage: 120 MG, Q6WK
     Route: 058
     Dates: start: 20130601

REACTIONS (7)
  - Inappropriate schedule of drug administration [Not Recovered/Not Resolved]
  - Syncope [Unknown]
  - Pneumonia [Unknown]
  - Pain in jaw [Recovered/Resolved]
  - Pain [Not Recovered/Not Resolved]
  - Lung neoplasm malignant [Unknown]
  - Blood pressure abnormal [Unknown]

NARRATIVE: CASE EVENT DATE: 201307
